FAERS Safety Report 13817319 (Version 1)
Quarter: 2017Q3

REPORT INFORMATION
  Report Type: Spontaneous
  Country: US (occurrence: US)
  Receive Date: 20170731
  Receipt Date: 20170731
  Transmission Date: 20171127
  Serious: Yes (Other)
  Sender: FDA-Public Use
  Company Number: US-SA-2017SA136376

PATIENT
  Age: 40 Year
  Sex: Female

DRUGS (3)
  1. LEMTRADA [Suspect]
     Active Substance: ALEMTUZUMAB
     Route: 041
     Dates: start: 20161213
  2. HYZAAR [Concomitant]
     Active Substance: HYDROCHLOROTHIAZIDE\LOSARTAN POTASSIUM
     Route: 065
  3. METOLAZONE. [Concomitant]
     Active Substance: METOLAZONE
     Route: 065

REACTIONS (3)
  - Renal failure [Unknown]
  - Diabetic nephropathy [Unknown]
  - Renal arteriosclerosis [Unknown]
